FAERS Safety Report 9759335 (Version 1)
Quarter: 2013Q4

REPORT INFORMATION
  Report Type: Spontaneous
  Country: US (occurrence: None)
  Receive Date: 20131216
  Receipt Date: 20131216
  Transmission Date: 20140711
  Serious: Yes (Other)
  Sender: FDA-Public Use
  Company Number: 163-21880-12033690(0)

PATIENT
  Age: 62 Year
  Sex: Male
  Weight: 80 kg

DRUGS (1)
  1. REVLIMID(LENALIDOMIDE)(CAPSULES) [Suspect]
     Indication: PLASMA CELL MYELOMA
     Dosage: 5 MG, 3 IN 1 WK, PO?5 MG, MON/WED, PO ?10 MG, FRIDAY PO ?5 MG, EVERY, MONDAY, WED. AND FRI. WEEKLY,

REACTIONS (4)
  - Renal failure chronic [None]
  - Neuropathy peripheral [None]
  - Diarrhoea [None]
  - Viral infection [None]
